FAERS Safety Report 24297641 (Version 1)
Quarter: 2024Q3

REPORT INFORMATION
  Report Type: Spontaneous
  Country: US (occurrence: US)
  Receive Date: 20240909
  Receipt Date: 20240909
  Transmission Date: 20241017
  Serious: No
  Sender: BRISTOL MYERS SQUIBB
  Company Number: US-BRISTOL-MYERS SQUIBB COMPANY-2024-142604

PATIENT
  Age: 56 Year
  Sex: Female

DRUGS (1)
  1. REVLIMID [Suspect]
     Active Substance: LENALIDOMIDE
     Indication: Plasma cell myeloma in remission
     Route: 048

REACTIONS (7)
  - Nausea [Unknown]
  - Confusional state [Unknown]
  - Fear [Unknown]
  - Abdominal discomfort [Unknown]
  - Asthenia [Unknown]
  - Dizziness [Unknown]
  - Pain [Unknown]
